FAERS Safety Report 19307585 (Version 5)
Quarter: 2021Q3

REPORT INFORMATION
  Report Type: Spontaneous
  Country: GB (occurrence: GB)
  Receive Date: 20210526
  Receipt Date: 20210803
  Transmission Date: 20211014
  Serious: Yes (Death, Other)
  Sender: FDA-Public Use
  Company Number: GB-ACCORD-225986

PATIENT
  Age: 5 Year
  Sex: Male

DRUGS (6)
  1. CYCLOPHOSPHAMIDE/CYCLOPHOSPHAMIDE MONOHYDRATE [Suspect]
     Active Substance: CYCLOPHOSPHAMIDE
     Indication: CHEMOTHERAPY
     Route: 051
     Dates: start: 20191101, end: 20191216
  2. CARBOPLATIN. [Concomitant]
     Active Substance: CARBOPLATIN
  3. CISPLATIN. [Suspect]
     Active Substance: CISPLATIN
     Indication: CHEMOTHERAPY
     Route: 051
     Dates: start: 20191101, end: 20191216
  4. VEPESID [Suspect]
     Active Substance: ETOPOSIDE
     Indication: CHEMOTHERAPY
     Route: 051
     Dates: start: 20191101, end: 20191216
  5. THIOTEPA. [Concomitant]
     Active Substance: THIOTEPA
  6. VINCRISTINE [Suspect]
     Active Substance: VINCRISTINE
     Indication: CHEMOTHERAPY
     Route: 051
     Dates: start: 20191101, end: 20191216

REACTIONS (19)
  - Pain [Unknown]
  - Abdominal discomfort [Unknown]
  - Intestinal prolapse [Unknown]
  - Rectal prolapse [Unknown]
  - Feeding disorder [Unknown]
  - Illness [Unknown]
  - Mouth ulceration [Unknown]
  - Haemorrhage intracranial [Fatal]
  - Seizure [Unknown]
  - Diarrhoea [Unknown]
  - Malignant neoplasm progression [Unknown]
  - Headache [Unknown]
  - Drug ineffective [Unknown]
  - Acute kidney injury [Unknown]
  - Prolapse [Unknown]
  - Pancytopenia [Unknown]
  - Neutropenic sepsis [Unknown]
  - Vomiting [Unknown]
  - Hydrocephalus [Unknown]

NARRATIVE: CASE EVENT DATE: 20191216
